FAERS Safety Report 5868036-1 (Version None)
Quarter: 2008Q3

REPORT INFORMATION
  Report Type: 
  Country: None (occurrence: None)
  Receive Date: 20080902
  Receipt Date: 20080827
  Transmission Date: 20090109
  Serious: Yes (Other)
  Sender: FDA-Public Use
  Company Number: US-ASTRAZENECA-2008UW17642

PATIENT
  Sex: Male

DRUGS (1)
  1. SEROQUEL [Suspect]
     Dosage: 3 OR 4 DOSES
     Route: 048
     Dates: start: 20080501

REACTIONS (2)
  - ABASIA [None]
  - SPEECH DISORDER [None]
